FAERS Safety Report 23799322 (Version 1)
Quarter: 2024Q2

REPORT INFORMATION
  Report Type: Spontaneous
  Country: US (occurrence: None)
  Receive Date: 20240426
  Receipt Date: 20240426
  Transmission Date: 20240716
  Serious: No
  Sender: FDA-Public Use
  Company Number: None

PATIENT

DRUGS (1)
  1. TAGRISSO [Suspect]
     Active Substance: OSIMERTINIB

REACTIONS (4)
  - Stomatitis [None]
  - Oral infection [None]
  - Cardiac disorder [None]
  - Dyspnoea [None]

NARRATIVE: CASE EVENT DATE: 20240326
